FAERS Safety Report 21944167 (Version 1)
Quarter: 2023Q1

REPORT INFORMATION
  Report Type: Spontaneous
  Country: US (occurrence: US)
  Receive Date: 20230202
  Receipt Date: 20230202
  Transmission Date: 20230418
  Serious: Yes (Life-Threatening, Hospitalization)
  Sender: FDA-Public Use
  Company Number: US-BRISTOL-MYERS SQUIBB COMPANY-2023-015340

PATIENT
  Age: 89 Year
  Sex: Male
  Weight: 81.65 kg

DRUGS (1)
  1. ELIQUIS [Suspect]
     Active Substance: APIXABAN
     Indication: Thrombosis prophylaxis
     Route: 048
     Dates: start: 2022

REACTIONS (2)
  - Hypertension [Unknown]
  - Contusion [Unknown]

NARRATIVE: CASE EVENT DATE: 20221101
